FAERS Safety Report 17272002 (Version 7)
Quarter: 2020Q4

REPORT INFORMATION
  Report Type: Spontaneous
  Country: CA (occurrence: CA)
  Receive Date: 20200115
  Receipt Date: 20201124
  Transmission Date: 20210113
  Serious: Yes (Hospitalization, Other)
  Sender: FDA-Public Use
  Company Number: CA-PFIZER INC-2019334510

PATIENT
  Age: 35 Year
  Sex: Male
  Weight: 72 kg

DRUGS (8)
  1. XELJANZ [Suspect]
     Active Substance: TOFACITINIB CITRATE
     Indication: COLITIS ULCERATIVE
     Dosage: 10 MG, 2X/DAY
     Route: 048
     Dates: start: 20190605, end: 2019
  2. XELJANZ [Suspect]
     Active Substance: TOFACITINIB CITRATE
     Dosage: 10 MG, 2X/DAY
     Route: 048
     Dates: start: 20190606, end: 2019
  3. PREDNISONE. [Concomitant]
     Active Substance: PREDNISONE
     Dosage: TAPERING DOSE
     Route: 065
     Dates: end: 2020
  4. XELJANZ [Suspect]
     Active Substance: TOFACITINIB CITRATE
     Dosage: 5 MG, 2X/DAY (FIRST THING IN THE MORNING AND LAST THING AT NIGHT)
     Route: 048
     Dates: start: 2019, end: 2019
  5. XELJANZ [Suspect]
     Active Substance: TOFACITINIB CITRATE
     Dosage: 10 MG, 2X/DAY
     Route: 048
     Dates: start: 201903, end: 201912
  6. XELJANZ [Suspect]
     Active Substance: TOFACITINIB CITRATE
     Dosage: 5 MG, 2X/DAY
     Route: 048
     Dates: start: 2019, end: 2020
  7. XELJANZ [Suspect]
     Active Substance: TOFACITINIB CITRATE
     Dosage: 10 MG, 2X/DAY
     Route: 048
     Dates: start: 202009
  8. PREDNISONE. [Concomitant]
     Active Substance: PREDNISONE
     Indication: COLITIS ULCERATIVE
     Dosage: 5 MG, 1X/DAY TAPERING HIS PREDNISONE AND HE IS DOWN TO 25 MG
     Route: 048
     Dates: end: 2020

REACTIONS (16)
  - Colitis ulcerative [Recovered/Resolved]
  - Herpes zoster [Recovered/Resolved]
  - Mental disorder [Unknown]
  - Anxiety [Unknown]
  - Depression [Unknown]
  - Blood cholesterol increased [Unknown]
  - Corneal lesion [Recovered/Resolved]
  - Miliaria [Recovering/Resolving]
  - Skin burning sensation [Recovering/Resolving]
  - Hypertension [Unknown]
  - Condition aggravated [Unknown]
  - Dry skin [Recovering/Resolving]
  - Drug ineffective [Unknown]
  - Corneal infection [Recovered/Resolved]
  - Pruritus [Unknown]
  - Condition aggravated [Unknown]

NARRATIVE: CASE EVENT DATE: 2019
